FAERS Safety Report 13760461 (Version 1)
Quarter: 2017Q3

REPORT INFORMATION
  Report Type: Spontaneous
  Country: US (occurrence: US)
  Receive Date: 20170717
  Receipt Date: 20170717
  Transmission Date: 20171127
  Serious: No
  Sender: FDA-Public Use
  Company Number: US-VALIDUS PHARMACEUTICALS LLC-US-2016VAL002315

PATIENT
  Sex: Male

DRUGS (1)
  1. LOTENSIN HCT [Suspect]
     Active Substance: BENAZEPRIL HYDROCHLORIDE\HYDROCHLOROTHIAZIDE
     Indication: PRODUCT USED FOR UNKNOWN INDICATION
     Dosage: .5 DF, QD (20/25 MG CUT IN HALF)

REACTIONS (4)
  - Dizziness [Unknown]
  - Eye irritation [Unknown]
  - Palpitations [Unknown]
  - Headache [Unknown]
